FAERS Safety Report 23487235 (Version 2)
Quarter: 2024Q2

REPORT INFORMATION
  Report Type: Spontaneous
  Country: JP (occurrence: JP)
  Receive Date: 20240206
  Receipt Date: 20240520
  Transmission Date: 20240715
  Serious: Yes (Other)
  Sender: FDA-Public Use
  Company Number: JP-PHARMAESSENTIA CORPORATION-JP-2024-PEC-002962

PATIENT
  Age: 69 Year
  Sex: Male

DRUGS (1)
  1. BESREMI [Suspect]
     Active Substance: ROPEGINTERFERON ALFA-2B-NJFT
     Indication: Polycythaemia vera
     Dosage: UNK
     Route: 058

REACTIONS (3)
  - Acute myeloid leukaemia [Unknown]
  - Injection site erythema [Recovered/Resolved]
  - Erythema [Recovered/Resolved]
